FAERS Safety Report 21221212 (Version 1)
Quarter: 2022Q3

REPORT INFORMATION
  Report Type: Report from Study
  Country: US (occurrence: US)
  Receive Date: 20220817
  Receipt Date: 20220817
  Transmission Date: 20221027
  Serious: No
  Sender: FDA-Public Use
  Company Number: US-BIOVITRUM-2022US09584

PATIENT
  Sex: Female

DRUGS (9)
  1. KINERET [Suspect]
     Active Substance: ANAKINRA
     Indication: Product used for unknown indication
  2. ZYRTEC [Concomitant]
     Active Substance: CETIRIZINE HYDROCHLORIDE
  3. SABRIL [Concomitant]
     Active Substance: VIGABATRIN
  4. PHENOBARBITAL [Concomitant]
     Active Substance: PHENOBARBITAL
  5. CALCIUM CARBONATE [Concomitant]
     Active Substance: CALCIUM CARBONATE
  6. ONFI [Concomitant]
     Active Substance: CLOBAZAM
  7. VIMPAT [Concomitant]
     Active Substance: LACOSAMIDE
  8. TOPIRAMATE [Concomitant]
     Active Substance: TOPIRAMATE
  9. VITAMINS [Concomitant]
     Active Substance: VITAMINS

REACTIONS (3)
  - Erythema [Unknown]
  - Crying [Unknown]
  - Injection site pain [Unknown]
